FAERS Safety Report 23859732 (Version 1)
Quarter: 2024Q2

REPORT INFORMATION
  Report Type: Spontaneous
  Country: US (occurrence: US)
  Receive Date: 20240515
  Receipt Date: 20240515
  Transmission Date: 20240716
  Serious: No
  Sender: FDA-Public Use
  Company Number: US-JNJFOC-20240538746

PATIENT
  Age: 37 Year
  Sex: Female
  Weight: 71.2 kg

DRUGS (17)
  1. OPSUMIT [Suspect]
     Active Substance: MACITENTAN
     Indication: Pulmonary hypertension
     Route: 048
     Dates: end: 2024
  2. TREPROSTINIL SODIUM [Suspect]
     Active Substance: TREPROSTINIL SODIUM
     Indication: Pulmonary hypertension
     Dosage: (SELF-FILL CASSETTE WITH 2.7ML AT A RATE OF 31 MCL PER HOUR)
     Route: 058
     Dates: start: 20240131
  3. TREPROSTINIL SODIUM [Suspect]
     Active Substance: TREPROSTINIL SODIUM
     Dosage: (SELF-FILL CASSETTE WITH 1.9 ML; RATE OF 20 MCL PER HOUR)
     Route: 058
     Dates: start: 2024
  4. TREPROSTINIL SODIUM [Suspect]
     Active Substance: TREPROSTINIL SODIUM
     Dosage: (SELF FILLED WITH 3 ML PER CASSETTE AT THE RATE OF 41 MCL PER HOUR)
     Route: 058
     Dates: start: 2024
  5. FUROSEMIDE [Concomitant]
     Active Substance: FUROSEMIDE
  6. TYLENOL EXTRA STRENGTH [Concomitant]
     Active Substance: ACETAMINOPHEN
  7. SODIUM CHLORIDE [Concomitant]
     Active Substance: SODIUM CHLORIDE
  8. KETAMINE HYDROCHLORIDE [Concomitant]
     Active Substance: KETAMINE HYDROCHLORIDE
  9. LECITHIN [GLYCINE MAX EXTRACT] [Concomitant]
  10. SILDENAFIL CITRATE [Concomitant]
     Active Substance: SILDENAFIL CITRATE
  11. CLONIDINE HYDROCHLORIDE [Concomitant]
     Active Substance: CLONIDINE HYDROCHLORIDE
  12. KETOPROFEN [Concomitant]
     Active Substance: KETOPROFEN
  13. TUMS [Concomitant]
     Active Substance: CALCIUM CARBONATE
  14. LIDOCAINE HYDROCHLORIDE [Concomitant]
     Active Substance: LIDOCAINE HYDROCHLORIDE
  15. AMITRIPTYLINE HYDROCHLORIDE [Concomitant]
     Active Substance: AMITRIPTYLINE HYDROCHLORIDE
  16. GABAPENTIN [Concomitant]
     Active Substance: GABAPENTIN
  17. POLOXAMER [Concomitant]
     Active Substance: POLOXAMER

REACTIONS (2)
  - Headache [Unknown]
  - Dyspepsia [Unknown]
